FAERS Safety Report 12136769 (Version 1)
Quarter: 2016Q1

REPORT INFORMATION
  Report Type: Spontaneous
  Country: US (occurrence: None)
  Receive Date: 20160301
  Receipt Date: 20160301
  Transmission Date: 20160526
  Serious: No
  Sender: FDA-Public Use
  Company Number: None

PATIENT
  Age: 65 Year
  Sex: Male
  Weight: 118 kg

DRUGS (1)
  1. ARIPIPRAZOLE. [Suspect]
     Active Substance: ARIPIPRAZOLE
     Indication: DEPRESSION
     Dosage: MG EVERY DAY PO
     Route: 048
     Dates: start: 20141016, end: 20160106

REACTIONS (3)
  - Insomnia [None]
  - Restless legs syndrome [None]
  - Mood altered [None]

NARRATIVE: CASE EVENT DATE: 20160106
